FAERS Safety Report 10717921 (Version 4)
Quarter: 2015Q2

REPORT INFORMATION
  Report Type: Report from Study
  Country: US (occurrence: US)
  Receive Date: 20150116
  Receipt Date: 20150507
  Transmission Date: 20150821
  Serious: Yes (Hospitalization)
  Sender: FDA-Public Use
  Company Number: US-GILEAD-2015-0131885

PATIENT
  Age: 45 Year
  Sex: Female
  Weight: 65 kg

DRUGS (12)
  1. DIGOXIN. [Concomitant]
     Active Substance: DIGOXIN
  2. AMBRISENTAN [Suspect]
     Active Substance: AMBRISENTAN
     Indication: COR PULMONALE CHRONIC
     Dosage: 5 MG, QD
     Route: 065
     Dates: start: 20141226, end: 20150119
  3. REMODULIN [Suspect]
     Active Substance: TREPROSTINIL
     Indication: PULMONARY HYPERTENSION
     Dosage: 0.027 ?G/KG/MIN, UNK
     Route: 058
     Dates: start: 20140617
  4. AMITRIPTYLIN [Concomitant]
     Active Substance: AMITRIPTYLINE
  5. SILDENAFIL. [Concomitant]
     Active Substance: SILDENAFIL
  6. SILDENAFIL. [Concomitant]
     Active Substance: SILDENAFIL
  7. ADCIRCA [Concomitant]
     Active Substance: TADALAFIL
  8. AMBRISENTAN [Suspect]
     Active Substance: AMBRISENTAN
     Indication: PULMONARY ARTERIAL HYPERTENSION
  9. AMITRIPTYLIN [Concomitant]
     Active Substance: AMITRIPTYLINE
  10. AMBRISENTAN [Suspect]
     Active Substance: AMBRISENTAN
     Indication: CORONARY ARTERY DISEASE
  11. GABAPENTIN. [Concomitant]
     Active Substance: GABAPENTIN
  12. GABAPENTIN. [Concomitant]
     Active Substance: GABAPENTIN

REACTIONS (13)
  - Infusion site erythema [Unknown]
  - Fatigue [Not Recovered/Not Resolved]
  - Infusion site haemorrhage [Unknown]
  - Erythema [Unknown]
  - Infusion site swelling [Unknown]
  - Infusion site pain [Unknown]
  - Infusion site irritation [Unknown]
  - Dizziness [Recovered/Resolved]
  - Skin haemorrhage [Unknown]
  - Dermatitis contact [Unknown]
  - Peripheral swelling [Recovering/Resolving]
  - Oedema [Recovering/Resolving]
  - Device leakage [Unknown]
